FAERS Safety Report 15473026 (Version 1)
Quarter: 2018Q4

REPORT INFORMATION
  Report Type: Other
  Country: CA (occurrence: CA)
  Receive Date: 20181008
  Receipt Date: 20181008
  Transmission Date: 20190205
  Serious: Yes (Other)
  Sender: FDA-Public Use
  Company Number: CA-PURDUE PHARMA-CAN-2018-0009047

PATIENT
  Age: 44 Year
  Sex: Male

DRUGS (7)
  1. HYDROMORPHONE HYDROCHLORIDE. [Suspect]
     Active Substance: HYDROMORPHONE HYDROCHLORIDE
     Dosage: 8 MG, DAILY
     Route: 065
  2. DECADRON [Suspect]
     Active Substance: DEXAMETHASONE
     Indication: ANALGESIC THERAPY
     Dosage: 4 MG, DAILY
     Route: 065
  3. PREGABALIN. [Suspect]
     Active Substance: PREGABALIN
     Indication: ANALGESIC THERAPY
     Dosage: 150 MG, DAILY
     Route: 065
  4. HYDROMORPHONE HYDROCHLORIDE. [Suspect]
     Active Substance: HYDROMORPHONE HYDROCHLORIDE
     Dosage: 8 MG, DAILY
     Route: 065
  5. HYDROMORPHONE HYDROCHLORIDE. [Suspect]
     Active Substance: HYDROMORPHONE HYDROCHLORIDE
     Dosage: 20 MG, DAILY
     Route: 065
  6. HYDROMORPHONE HYDROCHLORIDE. [Suspect]
     Active Substance: HYDROMORPHONE HYDROCHLORIDE
     Indication: ANALGESIC THERAPY
     Dosage: 30 MG, DAILY
     Route: 065
  7. HYDROMORPHONE HYDROCHLORIDE. [Suspect]
     Active Substance: HYDROMORPHONE HYDROCHLORIDE
     Dosage: 10 MG, DAILY
     Route: 065

REACTIONS (10)
  - Nausea [Recovering/Resolving]
  - Drug ineffective [Recovering/Resolving]
  - Constipation [Recovering/Resolving]
  - Insomnia [Recovering/Resolving]
  - Emotional distress [Recovering/Resolving]
  - Pain [Recovering/Resolving]
  - Trismus [Recovering/Resolving]
  - Decreased appetite [Recovering/Resolving]
  - Depression [Recovering/Resolving]
  - Somnolence [Recovering/Resolving]
